FAERS Safety Report 8770656 (Version 2)
Quarter: 2012Q4

REPORT INFORMATION
  Report Type: 
  Country: DE (occurrence: DE)
  Receive Date: 20120907
  Receipt Date: 20121116
  Transmission Date: 20130627
  Serious: Yes (Other)
  Sender: FDA-Public Use
  Company Number: DE-ROCHE-1117851

PATIENT
  Age: 58 Year

DRUGS (1)
  1. MABTHERA [Suspect]
     Indication: PRODUCT USED FOR UNKNOWN INDICATION
     Dosage: Last infusion apr/2012
     Route: 065

REACTIONS (1)
  - Neuroborreliosis [Not Recovered/Not Resolved]
